FAERS Safety Report 5195319-3 (Version None)
Quarter: 2006Q4

REPORT INFORMATION
  Report Type: 
  Country: None (occurrence: None)
  Receive Date: 20061130
  Receipt Date: 20060906
  Transmission Date: 20070319
  Serious: Yes (Disabling)
  Sender: FDA-Public Use
  Company Number: WAES 0609USA01221

PATIENT
  Age: 45 Year
  Sex: Male

DRUGS (1)
  1. FOSAMAX [Suspect]
     Indication: DRUG USE FOR UNKNOWN INDICATION
     Dosage: UNK/UNK/PO
     Route: 048
     Dates: start: 20040101, end: 20060101

REACTIONS (1)
  - OSTEONECROSIS [None]
